FAERS Safety Report 4435325-7 (Version None)
Quarter: 2004Q3

REPORT INFORMATION
  Report Type: 
  Country: None (occurrence: None)
  Receive Date: 20040827
  Receipt Date: 20040818
  Transmission Date: 20050211
  Serious: Yes (Death, Life-Threatening)
  Sender: FDA-Public Use
  Company Number: FR-JNJFOC-20040402710

PATIENT
  Age: 9 Month
  Sex: Male
  Weight: 5.8 kg

DRUGS (7)
  1. EPITOMAX [Suspect]
     Indication: EPILEPSY
     Route: 049
     Dates: start: 20031106, end: 20040303
  2. STIRIPENTOL [Concomitant]
     Indication: EPILEPSY
     Route: 065
  3. SABRIL [Concomitant]
     Route: 065
  4. DEPAKINE [Concomitant]
     Route: 065
  5. LAMICTAL [Concomitant]
     Route: 065
  6. DI-HYDAN [Concomitant]
     Route: 065
  7. URBANYL [Concomitant]
     Route: 065

REACTIONS (8)
  - BONE MARROW DISORDER [None]
  - COMA [None]
  - EPILEPSY [None]
  - GASTROENTERITIS [None]
  - LISSENCEPHALY [None]
  - METABOLIC ACIDOSIS [None]
  - RENAL FAILURE ACUTE [None]
  - TACHYPNOEA [None]
